FAERS Safety Report 6441718-9 (Version None)
Quarter: 2009Q4

REPORT INFORMATION
  Report Type: 
  Country: None (occurrence: None)
  Receive Date: 20091116
  Receipt Date: 20091102
  Transmission Date: 20100525
  Serious: Yes (Hospitalization)
  Sender: FDA-Public Use
  Company Number: US-SANOFI-AVENTIS-2009SA001051

PATIENT
  Sex: Female

DRUGS (1)
  1. LANTUS [Suspect]
     Route: 058

REACTIONS (1)
  - BLOOD POTASSIUM ABNORMAL [None]
